FAERS Safety Report 24855523 (Version 2)
Quarter: 2025Q1

REPORT INFORMATION
  Report Type: Spontaneous
  Country: DE (occurrence: DE)
  Receive Date: 20250117
  Receipt Date: 20250221
  Transmission Date: 20250408
  Serious: No
  Sender: AMGEN
  Company Number: DE-UCBSA-2025001966

PATIENT
  Sex: Female
  Weight: 56 kg

DRUGS (3)
  1. EVENITY [Suspect]
     Active Substance: ROMOSOZUMAB-AQQG
     Indication: Osteoporosis
     Route: 058
     Dates: start: 20240716, end: 20240814
  2. METOPROLOL [Concomitant]
     Active Substance: METOPROLOL
     Indication: Hypertension
     Dosage: 95 MILLIGRAM, ONCE DAILY (QD)
     Route: 048
  3. LOSARTAN [Concomitant]
     Active Substance: LOSARTAN
     Indication: Product used for unknown indication
     Dosage: 32 MILLIGRAM, ONCE DAILY (QD)
     Route: 048

REACTIONS (1)
  - Vitreous opacities [Not Recovered/Not Resolved]

NARRATIVE: CASE EVENT DATE: 20240801
